FAERS Safety Report 15441138 (Version 1)
Quarter: 2018Q3

REPORT INFORMATION
  Report Type: Spontaneous
  Country: US (occurrence: US)
  Receive Date: 20180928
  Receipt Date: 20180928
  Transmission Date: 20181010
  Serious: No
  Sender: FDA-Public Use
  Company Number: US-BAYER-2018-178581

PATIENT
  Age: 6 Week
  Sex: Male
  Weight: 5 kg

DRUGS (1)
  1. LOTRIMIN ULTRA ANTIFUNGAL [Suspect]
     Active Substance: BUTENAFINE HYDROCHLORIDE
     Indication: DERMATITIS DIAPER
     Dosage: UNK
     Route: 061

REACTIONS (5)
  - Product packaging issue [None]
  - Product use in unapproved indication [Unknown]
  - Screaming [Unknown]
  - Insomnia [Unknown]
  - Off label use [Unknown]
